FAERS Safety Report 16824252 (Version 2)
Quarter: 2020Q1

REPORT INFORMATION
  Report Type: Other
  Country: CA (occurrence: CA)
  Receive Date: 20190918
  Receipt Date: 20200217
  Transmission Date: 20200409
  Serious: Yes (Other)
  Sender: FDA-Public Use
  Company Number: CA-BECTON DICKINSON-2019BDN00328

PATIENT
  Age: 42 Year
  Sex: Female
  Weight: 81 kg

DRUGS (34)
  1. LEFLUNOMIDE. [Suspect]
     Active Substance: LEFLUNOMIDE
  2. PREDNISONE. [Concomitant]
     Active Substance: PREDNISONE
  3. VITAMIN C [Concomitant]
     Active Substance: ASCORBIC ACID
  4. ZOPICLONE [Concomitant]
     Active Substance: ZOPICLONE
  5. ACETAMINOPHEN/OXYCODONE HYDROCHLORIDE/OXYCODONE TEREPHTHALATE [Suspect]
     Active Substance: ACETAMINOPHEN\OXYCODONE HYDROCHLORIDE\OXYCODONE TEREPHTHALATE
  6. OXYCODONE [Suspect]
     Active Substance: OXYCODONE
  7. HYDROXYCHLOROQUINE [Concomitant]
     Active Substance: HYDROXYCHLOROQUINE
  8. IBUPROFEN. [Concomitant]
     Active Substance: IBUPROFEN
  9. PANTOLOC [Concomitant]
     Active Substance: PANTOPRAZOLE SODIUM
  10. ACETAMINOPHEN. [Suspect]
     Active Substance: ACETAMINOPHEN
  11. CIMZIA [Suspect]
     Active Substance: CERTOLIZUMAB PEGOL
     Indication: RHEUMATOID ARTHRITIS
     Dosage: 400.0 MG
     Route: 058
  12. TYLENOL [Concomitant]
     Active Substance: ACETAMINOPHEN
  13. VITAMIN D3 [Concomitant]
     Active Substance: CHOLECALCIFEROL
  14. ARAVA [Suspect]
     Active Substance: LEFLUNOMIDE
  15. SIMPONI [Suspect]
     Active Substance: GOLIMUMAB
     Route: 058
  16. FISH OIL [Concomitant]
     Active Substance: FISH OIL
  17. PANTOPRAZOLE [Concomitant]
     Active Substance: PANTOPRAZOLE
  18. REACTINE [Concomitant]
  19. VENTOLIN [Concomitant]
     Active Substance: ALBUTEROL SULFATE
  20. CHOLECALCIFEROL [Concomitant]
     Active Substance: CHOLECALCIFEROL
  21. CIMZIA [Suspect]
     Active Substance: CERTOLIZUMAB PEGOL
     Dosage: 200.0 MG
     Route: 058
  22. ENBREL [Suspect]
     Active Substance: ETANERCEPT
     Indication: RHEUMATOID ARTHRITIS
     Route: 058
  23. COENZYME Q10 [Concomitant]
     Active Substance: UBIDECARENONE
  24. PLAQUENIL [Concomitant]
     Active Substance: HYDROXYCHLOROQUINE SULFATE
  25. CHLORHEXIDINE [Suspect]
     Active Substance: CHLORHEXIDINE
  26. CIMZIA [Suspect]
     Active Substance: CERTOLIZUMAB PEGOL
     Dosage: 400.0 MG
     Route: 058
  27. ERGOCALCIFEROL. [Concomitant]
     Active Substance: ERGOCALCIFEROL
  28. VITAMIN D [Concomitant]
     Active Substance: VITAMIN D NOS
  29. ACTEMRA [Suspect]
     Active Substance: TOCILIZUMAB
  30. METHOTREXATE. [Suspect]
     Active Substance: METHOTREXATE
  31. ORENCIA [Suspect]
     Active Substance: ABATACEPT
  32. OXYCODONE/ACETAMINOPHEN [Suspect]
     Active Substance: ACETAMINOPHEN\OXYCODONE HYDROCHLORIDE
  33. D-ALPHA TOCOPHEROL [Concomitant]
     Active Substance: .ALPHA.-TOCOPHEROL, D-
  34. DESOGESTREL/ETHINYL ESTRADIOL [Concomitant]
     Active Substance: DESOGESTREL\ETHINYL ESTRADIOL

REACTIONS (20)
  - Pain [Unknown]
  - Pruritus [Unknown]
  - Respiratory disorder [Unknown]
  - Sinusitis [Unknown]
  - Body temperature increased [Unknown]
  - Ear pain [Unknown]
  - Muscle spasticity [Unknown]
  - Vomiting [Unknown]
  - Abdominal pain upper [Unknown]
  - Insomnia [Unknown]
  - Urticaria [Unknown]
  - Peripheral swelling [Unknown]
  - Back pain [Unknown]
  - Joint swelling [Unknown]
  - Lower respiratory tract infection [Unknown]
  - Night sweats [Unknown]
  - Asthenia [Unknown]
  - Diarrhoea [Unknown]
  - Headache [Unknown]
  - Rash [Unknown]
